FAERS Safety Report 7032576-2 (Version None)
Quarter: 2010Q4

REPORT INFORMATION
  Report Type: 
  Country: None (occurrence: None)
  Receive Date: 20101007
  Receipt Date: 20100929
  Transmission Date: 20110411
  Serious: Yes (Other)
  Sender: FDA-Public Use
  Company Number: US-ROCHE-491602

PATIENT
  Age: 84 Year
  Sex: Female

DRUGS (5)
  1. BONIVA [Suspect]
     Indication: PRODUCT USED FOR UNKNOWN INDICATION
     Route: 048
     Dates: start: 20060914
  2. METFORMIN [Concomitant]
     Dosage: PATIENT REPORTED TAKING ^METAFORMIN.^
     Dates: start: 20061201
  3. ASPIRIN [Concomitant]
     Dosage: PATIENT REPORTED TAKING ^BABY ASPIRIN DAILY.^
  4. UNSPECIFIED MEDICATION [Concomitant]
     Dosage: PATIENT REPORTED TAKING HIGH BLOOD PRESSURE MEDICATION (NOS).
  5. UNSPECIFIED MEDICATION [Concomitant]
     Dosage: PATIENT REPORTED TAKING CHOLESTEROL MEDICATION (NOS).

REACTIONS (8)
  - BREAST MASS [None]
  - HYPOAESTHESIA [None]
  - INFLUENZA [None]
  - MULTIPLE FRACTURES [None]
  - NASOPHARYNGITIS [None]
  - OEDEMA PERIPHERAL [None]
  - PAIN IN EXTREMITY [None]
  - PARAESTHESIA [None]
